FAERS Safety Report 6831198-3 (Version None)
Quarter: 2010Q3

REPORT INFORMATION
  Report Type: 
  Country: None (occurrence: None)
  Receive Date: 20100709
  Receipt Date: 20100709
  Transmission Date: 20110219
  Serious: Yes (Other)
  Sender: FDA-Public Use
  Company Number: None

PATIENT
  Age: 56 Year
  Weight: 56.6996 kg

DRUGS (1)
  1. LEVAQUIN [Suspect]
     Indication: SINUSITIS
     Dosage: 500MG 1 A DAY PO
     Route: 048
     Dates: start: 20100625, end: 20100630

REACTIONS (3)
  - DERMATITIS [None]
  - PRURITUS [None]
  - RASH ERYTHEMATOUS [None]
